FAERS Safety Report 22635267 (Version 1)
Quarter: 2023Q2

REPORT INFORMATION
  Report Type: Spontaneous
  Country: SK (occurrence: SK)
  Receive Date: 20230623
  Receipt Date: 20230623
  Transmission Date: 20230722
  Serious: Yes (Other)
  Sender: FDA-Public Use
  Company Number: SK-PFIZER INC-202300228451

PATIENT
  Age: 72 Year
  Sex: Female

DRUGS (2)
  1. PACLITAXEL [Suspect]
     Active Substance: PACLITAXEL
     Indication: Hormone receptor positive HER2 negative breast cancer
     Dosage: FIRST LINE PALLIATIVE CHEMOTHERAPY
     Dates: start: 201811, end: 2019
  2. CARBOPLATIN [Suspect]
     Active Substance: CARBOPLATIN
     Indication: Hormone receptor positive HER2 negative breast cancer
     Dosage: FIRST LINE PALLIATIVE CHEMOTHERAPY
     Dates: start: 201811, end: 2019

REACTIONS (4)
  - Pulmonary oedema [Unknown]
  - Cardiac disorder [Unknown]
  - Off label use [Unknown]
  - Product use issue [Unknown]

NARRATIVE: CASE EVENT DATE: 20181101
